FAERS Safety Report 16315512 (Version 1)
Quarter: 2019Q2

REPORT INFORMATION
  Report Type: Spontaneous
  Country: US (occurrence: US)
  Receive Date: 20190515
  Receipt Date: 20190515
  Transmission Date: 20190711
  Serious: No
  Sender: FDA-Public Use
  Company Number: US-SA-2019SA125200

PATIENT
  Age: 35 Year
  Sex: Female

DRUGS (1)
  1. LOVENOX [Suspect]
     Active Substance: ENOXAPARIN SODIUM
     Indication: PREGNANCY
     Dosage: 40 MG, QD
     Route: 065
     Dates: start: 201810

REACTIONS (3)
  - Exposure during pregnancy [Unknown]
  - Haematoma [Unknown]
  - Product contamination with body fluid [Unknown]
